FAERS Safety Report 11081179 (Version 1)
Quarter: 2015Q2

REPORT INFORMATION
  Report Type: Spontaneous
  Country: US (occurrence: None)
  Receive Date: 20150429
  Receipt Date: 20150429
  Transmission Date: 20150821
  Serious: Yes (Hospitalization, Other)
  Sender: FDA-Public Use
  Company Number: US-H14001-15-00635

PATIENT
  Age: 44 Year
  Sex: Male

DRUGS (3)
  1. PANAX GINSENG [Suspect]
     Active Substance: ASIAN GINSENG
     Indication: PRODUCT USED FOR UNKNOWN INDICATION
  2. LAMOTRIGINE. [Suspect]
     Active Substance: LAMOTRIGINE
     Indication: GENERALISED TONIC-CLONIC SEIZURE
     Dosage: UP-TITRATION TO A GOAL DOSAGE OF 150 MG TWICE DAILY (UNKNOWN),UNKNOWN
  3. DEER ANTLER VELVET (OTHER PLANT ALKALOIDE AND NUTRAL PRODUCTS [Concomitant]

REACTIONS (2)
  - Drug interaction [None]
  - Drug reaction with eosinophilia and systemic symptoms [None]
